FAERS Safety Report 16921843 (Version 2)
Quarter: 2020Q3

REPORT INFORMATION
  Report Type: Report from Study
  Country: CA (occurrence: CA)
  Receive Date: 20191015
  Receipt Date: 20200701
  Transmission Date: 20201102
  Serious: Yes (Hospitalization)
  Sender: FDA-Public Use
  Company Number: PHHY2019CA148552

PATIENT
  Age: 71 Year
  Sex: Male
  Weight: 94.4 kg

DRUGS (24)
  1. ENTRESTO [Suspect]
     Active Substance: SACUBITRIL\VALSARTAN
     Dosage: 2 DF, (SACUBITRIL 49 MG/ VALSARTAN 51 MG) UNK
     Route: 048
     Dates: start: 20171206, end: 20180513
  2. ENTRESTO [Suspect]
     Active Substance: SACUBITRIL\VALSARTAN
     Dosage: 2 DF, (SACUBITRIL 49 MG/ VALSARTAN 51 MG) UNK
     Route: 048
     Dates: start: 20181005, end: 20190226
  3. ENTRESTO [Suspect]
     Active Substance: SACUBITRIL\VALSARTAN
     Dosage: 2 DF, (SACUBITRIL 24 MG/ VALSARTAN 26 MG) UNK
     Route: 048
     Dates: start: 20190606
  4. BISOPROLOL [Concomitant]
     Active Substance: BISOPROLOL
     Indication: PRODUCT USED FOR UNKNOWN INDICATION
     Dosage: 5 MG, UNK
     Route: 048
     Dates: start: 20171206
  5. ENTRESTO [Suspect]
     Active Substance: SACUBITRIL\VALSARTAN
     Indication: CARDIAC FAILURE CHRONIC
     Dosage: 2 DF, (SACUBITRIL 97 MG/ VALSARTAN 103 MG) UNK
     Route: 048
     Dates: start: 20170116, end: 20171205
  6. EPIVAL [Suspect]
     Active Substance: DIVALPROEX SODIUM
     Indication: PRODUCT USED FOR UNKNOWN INDICATION
     Dosage: UNK
     Route: 065
  7. SPIRONOLACTONE. [Concomitant]
     Active Substance: SPIRONOLACTONE
     Indication: PRODUCT USED FOR UNKNOWN INDICATION
     Dosage: 25 MG, UNK
     Route: 048
     Dates: start: 20170214
  8. FUROSEMIDE. [Concomitant]
     Active Substance: FUROSEMIDE
     Indication: PRODUCT USED FOR UNKNOWN INDICATION
     Dosage: 20 MG, UNK
     Route: 048
     Dates: start: 20180315
  9. ENTRESTO [Suspect]
     Active Substance: SACUBITRIL\VALSARTAN
     Dosage: 2 DF, (SACUBITRIL 24 MG/ VALSARTAN 26 MG) UNK
     Route: 048
     Dates: start: 20180514, end: 20180603
  10. EPIVAL [Suspect]
     Active Substance: DIVALPROEX SODIUM
     Dosage: 750 MG, QD
     Route: 048
     Dates: start: 20190616
  11. ENTRESTO [Suspect]
     Active Substance: SACUBITRIL\VALSARTAN
     Dosage: 2 DF, (SACUBITRIL 49 MG/ VALSARTAN 51 MG) UNK
     Route: 048
     Dates: start: 20180731, end: 20180930
  12. EPIVAL [Suspect]
     Active Substance: DIVALPROEX SODIUM
     Dosage: 750 MG, BID
     Route: 048
  13. EPIVAL [Suspect]
     Active Substance: DIVALPROEX SODIUM
     Dosage: 2500 MG, (750 MG IN AM AND 1750 MG AT BEDTIME)
     Route: 048
     Dates: start: 20190623
  14. DIGOXIN. [Concomitant]
     Active Substance: DIGOXIN
     Indication: PRODUCT USED FOR UNKNOWN INDICATION
     Dosage: 0.125 MG, UNK
     Route: 048
     Dates: start: 201405
  15. SPIRONOLACTONE. [Concomitant]
     Active Substance: SPIRONOLACTONE
     Dosage: 12.5 MG, UNK
     Route: 048
     Dates: start: 20190616
  16. ENTRESTO [Suspect]
     Active Substance: SACUBITRIL\VALSARTAN
     Dosage: 3 DF, (SACUBITRIL 24 MG/ VALSARTAN 26 MG) UNK
     Route: 048
     Dates: start: 20180604, end: 20180730
  17. ASAPHEN [Concomitant]
     Active Substance: ASPIRIN
     Indication: PRODUCT USED FOR UNKNOWN INDICATION
     Dosage: 80 MG, UNK
     Route: 048
     Dates: start: 20171207
  18. RIVAROXABAN [Concomitant]
     Active Substance: RIVAROXABAN
     Indication: PRODUCT USED FOR UNKNOWN INDICATION
     Dosage: 20 MG, UNK
     Route: 048
     Dates: start: 20181017
  19. ENTRESTO [Suspect]
     Active Substance: SACUBITRIL\VALSARTAN
     Indication: CARDIAC FAILURE
     Dosage: 2 DF, (SACUBITRIL 49 MG/ VALSARTAN 51 MG) UNK
     Route: 048
     Dates: start: 20161219, end: 20170115
  20. LIPITOR [Concomitant]
     Active Substance: ATORVASTATIN CALCIUM
     Indication: PRODUCT USED FOR UNKNOWN INDICATION
     Dosage: 40 MG, UNK
     Route: 048
     Dates: start: 20170908
  21. ENTRESTO [Suspect]
     Active Substance: SACUBITRIL\VALSARTAN
     Dosage: 2 DF, (SACUBITRIL 24 MG/ VALSARTAN 26 MG) UNK
     Route: 048
     Dates: start: 20190227, end: 20190605
  22. EPIVAL [Suspect]
     Active Substance: DIVALPROEX SODIUM
     Dosage: 1750 MG, (750 MG IN AM AND 1000 MG AT BED TIME)
     Route: 048
     Dates: start: 20190618
  23. AMIODARONE [Concomitant]
     Active Substance: AMIODARONE
     Indication: PRODUCT USED FOR UNKNOWN INDICATION
     Dosage: 200 MG, UNK
     Route: 048
     Dates: start: 20180525
  24. HEPARIN [Concomitant]
     Active Substance: HEPARIN SODIUM
     Indication: PRODUCT USED FOR UNKNOWN INDICATION
     Dosage: 2400 U, UNK
     Route: 042
     Dates: start: 20180928, end: 20181016

REACTIONS (6)
  - General physical health deterioration [Recovered/Resolved]
  - Product prescribing error [Unknown]
  - Toxicity to various agents [Unknown]
  - Concomitant disease aggravated [Recovered/Resolved]
  - Systemic inflammatory response syndrome [Recovered/Resolved]
  - Bipolar disorder [Recovered/Resolved]

NARRATIVE: CASE EVENT DATE: 20180604
